FAERS Safety Report 9399218 (Version 1)
Quarter: 2013Q3

REPORT INFORMATION
  Report Type: Spontaneous
  Country: GB (occurrence: None)
  Receive Date: 20130710
  Receipt Date: 20130710
  Transmission Date: 20140515
  Serious: Yes (Hospitalization)
  Sender: FDA-Public Use
  Company Number: AUR-APL-2013-05707

PATIENT
  Age: 28 Year
  Sex: Female

DRUGS (4)
  1. FLUOXETINE [Suspect]
     Indication: PRODUCT USED FOR UNKNOWN INDICATION
  2. OLANZAPINE (OLANZAPINE) [Suspect]
     Indication: PRODUCT USED FOR UNKNOWN INDICATION
     Route: 048
  3. CODEINE (CODEINE) [Concomitant]
     Route: 048
  4. LANSOPRAXOLE (LANSOPRAZOLE) [Concomitant]

REACTIONS (3)
  - Jaundice [None]
  - Vomiting [None]
  - Liver disorder [None]
